FAERS Safety Report 15755211 (Version 11)
Quarter: 2021Q2

REPORT INFORMATION
  Report Type: Report from Study
  Country: GB (occurrence: GB)
  Receive Date: 20181224
  Receipt Date: 20210621
  Transmission Date: 20210716
  Serious: Yes (Hospitalization)
  Sender: FDA-Public Use
  Company Number: GB-ROCHE-2234035

PATIENT
  Age: 9 Year
  Sex: Female
  Weight: 46.08 kg

DRUGS (9)
  1. TRIMETHOPRIM. [Concomitant]
     Active Substance: TRIMETHOPRIM
     Indication: URINARY TRACT INFECTION
     Dates: start: 20180713
  2. LOPERAMIDE [Concomitant]
     Active Substance: LOPERAMIDE
     Indication: DIARRHOEA
     Dates: start: 20180508
  3. MOMETASONE FUROATE. [Concomitant]
     Active Substance: MOMETASONE FUROATE
     Indication: ECZEMA
     Dates: start: 20181029, end: 20181120
  4. AZITHROMYCIN ANHYDROUS. [Concomitant]
     Active Substance: AZITHROMYCIN ANHYDROUS
     Indication: PARONYCHIA
     Dates: start: 20181129, end: 20181205
  5. COBIMETINIB. [Suspect]
     Active Substance: COBIMETINIB
     Indication: NEOPLASM
     Dosage: DATE OF LAST DOSE OF COBIMETINIB 7.5 MG PRIOR TO SERIOUS ADVERSE EVENT: 10/DEC/2018?DOSE CONCENTRATI
     Route: 048
     Dates: start: 20180418
  6. POTASSIUM PERMANGANATE [Concomitant]
     Active Substance: POTASSIUM PERMANGANATE
     Indication: PARONYCHIA
  7. DERMOLATE [Concomitant]
     Indication: RASH
     Dates: start: 20180508
  8. CLINDAMYCIN. [Concomitant]
     Active Substance: CLINDAMYCIN
     Indication: DERMATITIS ACNEIFORM
     Dates: start: 20180502
  9. BETNOVATE [Concomitant]
     Active Substance: BETAMETHASONE
     Indication: DERMATITIS ACNEIFORM
     Dates: start: 20180508

REACTIONS (1)
  - Paronychia [Recovered/Resolved with Sequelae]

NARRATIVE: CASE EVENT DATE: 20181214
